FAERS Safety Report 24894744 (Version 1)
Quarter: 2025Q1

REPORT INFORMATION
  Report Type: Spontaneous
  Country: US (occurrence: None)
  Receive Date: 20250127
  Receipt Date: 20250127
  Transmission Date: 20250408
  Serious: Yes (Other)
  Sender: FDA-CTU
  Company Number: None

PATIENT
  Age: 33 Year
  Sex: Female
  Weight: 148.95 kg

DRUGS (12)
  1. WELLBUTRIN XL [Suspect]
     Active Substance: BUPROPION HYDROCHLORIDE
     Indication: Depression
     Dates: start: 20241224, end: 20250123
  2. WELLBUTRIN XL [Suspect]
     Active Substance: BUPROPION HYDROCHLORIDE
     Indication: Anxiety
  3. WELLBUTRIN XL [Suspect]
     Active Substance: BUPROPION HYDROCHLORIDE
     Indication: Bipolar II disorder
  4. BACLOFEN [Concomitant]
     Active Substance: BACLOFEN
  5. ambein [Concomitant]
  6. GABAPENTIN [Concomitant]
     Active Substance: GABAPENTIN
  7. QULIPTA [Concomitant]
     Active Substance: ATOGEPANT
  8. UBRELVY [Concomitant]
     Active Substance: UBROGEPANT
  9. MAGNESIUM [Concomitant]
     Active Substance: MAGNESIUM
  10. MENAQUINONE 6 [Concomitant]
     Active Substance: MENAQUINONE 6
  11. VITAMIN D3 [Concomitant]
     Active Substance: CHOLECALCIFEROL
  12. FISH OIL [Concomitant]
     Active Substance: FISH OIL

REACTIONS (6)
  - Pain in jaw [None]
  - Oral pain [None]
  - Glossodynia [None]
  - Therapy interrupted [None]
  - Burning sensation mucosal [None]
  - Pruritus [None]

NARRATIVE: CASE EVENT DATE: 20241231
